FAERS Safety Report 10406617 (Version 2)
Quarter: 2014Q3

REPORT INFORMATION
  Report Type: Spontaneous
  Country: US (occurrence: US)
  Receive Date: 20140825
  Receipt Date: 20140825
  Transmission Date: 20150326
  Serious: Yes (Hospitalization, Other)
  Sender: FDA-Public Use
  Company Number: US-009507513-2010SP025302

PATIENT
  Sex: Female
  Weight: 61.24 kg

DRUGS (3)
  1. NUVARING [Suspect]
     Active Substance: ETHINYL ESTRADIOL\ETONOGESTREL
     Indication: CONTRACEPTION
     Route: 067
     Dates: start: 200604, end: 200703
  2. HORMONAL CONTRACEPTIVES (UNSPECIFIED) [Suspect]
     Active Substance: UNSPECIFIED INGREDIENT
     Indication: PRODUCT USED FOR UNKNOWN INDICATION
  3. NUVARING [Suspect]
     Active Substance: ETHINYL ESTRADIOL\ETONOGESTREL
     Indication: DYSMENORRHOEA

REACTIONS (21)
  - Pleural effusion [Unknown]
  - Chest pain [Unknown]
  - Normochromic normocytic anaemia [Recovered/Resolved]
  - Lymphocytosis [Not Recovered/Not Resolved]
  - Neuropathy peripheral [Unknown]
  - Pulmonary infarction [Unknown]
  - Depression [Unknown]
  - Hypertension [Unknown]
  - Deep vein thrombosis [Unknown]
  - Folate deficiency [Unknown]
  - Connective tissue disorder [Unknown]
  - Pyelonephritis [Unknown]
  - Pneumonia [Unknown]
  - Flank pain [Unknown]
  - Hypercoagulation [Unknown]
  - Vulvovaginal candidiasis [Unknown]
  - Urinary tract infection [Unknown]
  - Proteinuria [Unknown]
  - Pulmonary embolism [Unknown]
  - Vena cava filter insertion [Unknown]
  - Transfusion [Unknown]

NARRATIVE: CASE EVENT DATE: 20060502
